FAERS Safety Report 16554005 (Version 5)
Quarter: 2020Q1

REPORT INFORMATION
  Report Type: Report from Study
  Country: GB (occurrence: GB)
  Receive Date: 20190710
  Receipt Date: 20200305
  Transmission Date: 20200409
  Serious: Yes (Hospitalization)
  Sender: FDA-Public Use
  Company Number: GB-MYLANLABS-2019M1062897

PATIENT
  Sex: Female

DRUGS (88)
  1. TRASTUZUMAB. [Suspect]
     Active Substance: TRASTUZUMAB
     Dosage: 290 MILLIGRAM, Q3W
     Route: 042
     Dates: start: 20170209, end: 20171123
  2. PARACETAMOL [Concomitant]
     Active Substance: ACETAMINOPHEN
     Dosage: 1 GRAM
     Route: 065
     Dates: start: 20150918, end: 20150919
  3. DOCUSATE SODIUM. [Concomitant]
     Active Substance: DOCUSATE SODIUM
     Dosage: 300 MILLIGRAM, QD
     Route: 048
     Dates: start: 201603
  4. CYCLIZINE [Concomitant]
     Active Substance: CYCLIZINE
     Dosage: 50 MILLIGRAM, PRN
     Route: 048
     Dates: start: 20181220, end: 20181220
  5. ORAMORPH [Concomitant]
     Active Substance: MORPHINE SULFATE
     Indication: BACK PAIN
     Dosage: 20 MILLIGRAM
     Route: 048
     Dates: start: 20150513, end: 20150518
  6. DULOXETINE. [Concomitant]
     Active Substance: DULOXETINE
     Indication: ANXIETY
     Dosage: 120 MILLIGRAM, QD
     Route: 048
     Dates: start: 201603
  7. PARACETAMOL [Concomitant]
     Active Substance: ACETAMINOPHEN
     Dosage: 4000 MILLIGRAM, QD
     Route: 042
     Dates: start: 20160718
  8. DALTEPARIN [Concomitant]
     Active Substance: DALTEPARIN
     Dosage: 5000 INTERNATIONAL UNIT, QD
     Route: 058
     Dates: start: 20160508, end: 20160516
  9. DOXYCYCLINE. [Concomitant]
     Active Substance: DOXYCYCLINE
     Dosage: 100 MILLIGRAM
     Route: 048
     Dates: start: 20150722, end: 20150728
  10. ORAMORPH [Concomitant]
     Active Substance: MORPHINE SULFATE
     Dosage: 10 MILLIGRAM
     Route: 065
     Dates: start: 20150918, end: 20150919
  11. MACROGOL [Concomitant]
     Active Substance: POLYETHYLENE GLYCOLS
     Dosage: 2 SACHET
     Route: 048
     Dates: start: 201505, end: 201506
  12. MACROGOL [Concomitant]
     Active Substance: POLYETHYLENE GLYCOLS
     Dosage: 2, QD
     Route: 048
     Dates: start: 20160718, end: 20160722
  13. DOCUSATE [Concomitant]
     Active Substance: DOCUSATE
     Dosage: 300 MILLIGRAM, QD
     Route: 048
     Dates: start: 20160405, end: 20160516
  14. NYSTATIN. [Concomitant]
     Active Substance: NYSTATIN
     Dosage: 4, QD 100000 U
     Route: 050
     Dates: start: 201603, end: 20160330
  15. BUSCOPAN [Concomitant]
     Active Substance: BUTYLSCOPOLAMINE BROMIDE
     Indication: DIARRHOEA
     Dosage: 10 MILLIGRAM
     Route: 048
     Dates: start: 20160405
  16. TAZOCIN [Concomitant]
     Active Substance: PIPERACILLIN SODIUM\TAZOBACTAM SODIUM
     Indication: LOWER RESPIRATORY TRACT INFECTION
     Dosage: 13.5 MILLIGRAM, QD
     Route: 042
     Dates: start: 20160304, end: 20160309
  17. TAZOCIN [Concomitant]
     Active Substance: PIPERACILLIN SODIUM\TAZOBACTAM SODIUM
     Dosage: 13.5 MILLIGRAM, QD
     Route: 042
     Dates: start: 20181222, end: 20181222
  18. CYCLIZINE [Concomitant]
     Active Substance: CYCLIZINE
     Indication: NAUSEA
     Dosage: 150 MILLIGRAM, QD
     Route: 042
     Dates: start: 20160717, end: 20160718
  19. SENNA                              /00142201/ [Concomitant]
     Active Substance: SENNA LEAF
     Dosage: UNK
     Route: 048
     Dates: start: 201605
  20. HALOPERIDOL. [Concomitant]
     Active Substance: HALOPERIDOL
     Dosage: 5 MILLIGRAM, QD
     Route: 058
     Dates: start: 20160509
  21. LORAZEPAM. [Concomitant]
     Active Substance: LORAZEPAM
     Indication: ANXIETY
     Dosage: 3 MILLIGRAM, QD
     Route: 048
     Dates: start: 201603, end: 201603
  22. METOCLOPRAMIDE. [Concomitant]
     Active Substance: METOCLOPRAMIDE
     Indication: VOMITING
     Dosage: 10 MILLIGRAM
     Route: 065
     Dates: start: 20150326, end: 201505
  23. CYCLIZINE [Concomitant]
     Active Substance: CYCLIZINE
     Indication: NAUSEA
     Dosage: 150 MILLIGRAM, QD
     Route: 048
     Dates: start: 201603, end: 201607
  24. GABAPENTIN. [Concomitant]
     Active Substance: GABAPENTIN
     Dosage: 900 MILLIGRAM, QD
     Route: 048
     Dates: start: 201304
  25. AMOXICILLIN. [Concomitant]
     Active Substance: AMOXICILLIN
     Indication: LOWER RESPIRATORY TRACT INFECTION
     Dosage: 1500 MILLIGRAM, QD
     Route: 048
     Dates: start: 20160309, end: 20160312
  26. PARACETAMOL [Concomitant]
     Active Substance: ACETAMINOPHEN
     Dosage: 4000 MILLIGRAM, QD
     Route: 042
     Dates: start: 20190116, end: 20190120
  27. CREON [Concomitant]
     Active Substance: PANCRELIPASE AMYLASE\PANCRELIPASE LIPASE\PANCRELIPASE PROTEASE
     Dosage: UNK, PRN
     Route: 048
     Dates: start: 201809
  28. PERTUZUMAB. [Suspect]
     Active Substance: PERTUZUMAB
     Dosage: 840 MILLIGRAM, Q3W LOADING DOSE AS PER PROTOCOL
     Route: 042
     Dates: start: 20150326
  29. PARACETAMOL [Concomitant]
     Active Substance: ACETAMINOPHEN
     Indication: VOMITING
     Dosage: 4000 MILLIGRAM, QD
     Route: 042
     Dates: start: 20160718
  30. CASSIA ACUTIFOLIA [Concomitant]
     Indication: CONSTIPATION
     Dosage: 7.5 MILLIGRAM, QD
     Route: 048
     Dates: start: 20160512
  31. DOCUSATE SODIUM. [Concomitant]
     Active Substance: DOCUSATE SODIUM
     Indication: CONSTIPATION
     Dosage: 300 MILLIGRAM, QD
     Route: 048
     Dates: start: 20160405, end: 20160516
  32. DOCUSATE SODIUM. [Concomitant]
     Active Substance: DOCUSATE SODIUM
     Dosage: 300 MILLIGRAM, QD
     Route: 048
     Dates: start: 20160516
  33. METOCLOPRAMIDE. [Concomitant]
     Active Substance: METOCLOPRAMIDE
     Dosage: 30 MILLIGRAM, QD
     Route: 065
     Dates: start: 20150813
  34. CYCLIZINE [Concomitant]
     Active Substance: CYCLIZINE
     Dosage: 50 MILLIGRAM, PRN
     Route: 048
     Dates: start: 201809
  35. DICLOFENAC [Concomitant]
     Active Substance: DICLOFENAC
     Indication: BACK PAIN
     Dosage: 50 MILLIGRAM
     Route: 048
     Dates: start: 20150721, end: 201508
  36. TRIMETHOPRIM. [Concomitant]
     Active Substance: TRIMETHOPRIM
     Indication: URINARY TRACT INFECTION
     Dosage: 400 MILLIGRAM, QD
     Route: 048
     Dates: start: 20150604, end: 20150606
  37. AMITRIPTYLINE [Concomitant]
     Active Substance: AMITRIPTYLINE
     Indication: ANXIETY
     Dosage: 20 MILLIGRAM
     Route: 048
     Dates: start: 20160228, end: 20160302
  38. DIAZEPAM. [Concomitant]
     Active Substance: DIAZEPAM
     Indication: BACK PAIN
     Dosage: 2 MILLIGRAM
     Route: 048
     Dates: start: 20150629, end: 201603
  39. LIDOCAINE. [Concomitant]
     Active Substance: LIDOCAINE
     Indication: BACK PAIN
     Dosage: 5 PERCENT
     Route: 062
     Dates: start: 20151109, end: 201603
  40. DIFFLAM [Concomitant]
     Active Substance: BENZYDAMINE HYDROCHLORIDE
     Indication: MUCOSAL INFLAMMATION
     Dosage: 15 MILLIGRAM
     Route: 048
     Dates: start: 201603, end: 20160330
  41. CYCLIZINE [Concomitant]
     Active Substance: CYCLIZINE
     Dosage: 50 UNK
     Route: 042
     Dates: start: 20160508, end: 20160509
  42. TRASTUZUMAB. [Suspect]
     Active Substance: TRASTUZUMAB
     Indication: BREAST CANCER METASTATIC
     Dosage: 350 MILLIGRAM, Q3W
     Route: 042
     Dates: start: 20160303, end: 20160324
  43. TRASTUZUMAB. [Suspect]
     Active Substance: TRASTUZUMAB
     Indication: BREAST CANCER METASTATIC
     Dosage: 600 MILLIGRAM, Q3W
     Route: 058
     Dates: start: 20150326, end: 20160211
  44. PACLITAXEL. [Suspect]
     Active Substance: PACLITAXEL
     Indication: BREAST CANCER METASTATIC
     Dosage: 183 MILLIGRAM, QW
     Route: 042
     Dates: start: 20150326, end: 20150812
  45. PARACETAMOL [Concomitant]
     Active Substance: ACETAMINOPHEN
     Indication: OVARIAN CYST
     Dosage: 1 GRAM
     Route: 042
     Dates: start: 20160508, end: 20160508
  46. PARACETAMOL [Concomitant]
     Active Substance: ACETAMINOPHEN
     Dosage: 1000 GRAM
     Route: 048
     Dates: start: 201504
  47. CASSIA ACUTIFOLIA [Concomitant]
     Dosage: UNK
     Route: 048
     Dates: start: 201603
  48. CODEINE [Concomitant]
     Active Substance: CODEINE
     Dosage: 15 GRAM
     Route: 048
     Dates: start: 201504
  49. NYSTATIN. [Concomitant]
     Active Substance: NYSTATIN
     Indication: MUCOSAL INFLAMMATION
     Dosage: 4, 100000 U
     Route: 048
     Dates: start: 20160516
  50. HALOPERIDOL. [Concomitant]
     Active Substance: HALOPERIDOL
     Dosage: 1.5 MILLIGRAM
     Route: 048
     Dates: start: 201603, end: 201603
  51. LEVOMEPROMAZINE [Concomitant]
     Active Substance: LEVOMEPROMAZINE
     Dosage: 6.25 MILLIGRAM, PRN
     Route: 042
     Dates: start: 20190116, end: 20190117
  52. TRASTUZUMAB. [Suspect]
     Active Substance: TRASTUZUMAB
     Dosage: 290 MILLIGRAM, Q3W
     Route: 042
     Dates: start: 20180118
  53. PERTUZUMAB. [Suspect]
     Active Substance: PERTUZUMAB
     Indication: BREAST CANCER METASTATIC
     Dosage: 420 MILLIGRAM
     Route: 042
     Dates: start: 20150416, end: 20160211
  54. ZOMORPH [Concomitant]
     Active Substance: MORPHINE SULFATE
     Indication: BACK PAIN
     Dosage: 20 MILLIGRAM
     Route: 048
     Dates: start: 20150710
  55. LORAZEPAM. [Concomitant]
     Active Substance: LORAZEPAM
     Dosage: 1 MILLIGRAM, QD
     Route: 048
     Dates: start: 201809
  56. DALTEPARIN [Concomitant]
     Active Substance: DALTEPARIN
     Dosage: 5000 INTERNATIONAL UNIT
     Route: 058
     Dates: start: 20190116, end: 20190119
  57. CYSTITIS RELIEF                    /00609201/ [Concomitant]
     Dosage: 1 SACHET
     Route: 048
     Dates: start: 201503
  58. METOCLOPRAMIDE. [Concomitant]
     Active Substance: METOCLOPRAMIDE
     Dosage: 30 MILLIGRAM, QD
     Route: 042
     Dates: start: 20160719, end: 20160722
  59. BUSCOPAN [Concomitant]
     Active Substance: BUTYLSCOPOLAMINE BROMIDE
     Dosage: 60 MILLIGRAM, QD
     Route: 048
     Dates: start: 20150721
  60. HALOPERIDOL. [Concomitant]
     Active Substance: HALOPERIDOL
     Indication: ANXIETY
     Dosage: 15 MILLIGRAM
     Route: 048
     Dates: start: 201603, end: 201603
  61. HALOPERIDOL. [Concomitant]
     Active Substance: HALOPERIDOL
     Dosage: 1.5 MILLIGRAM, QD
     Route: 048
     Dates: start: 200109
  62. AMOXICILLIN. [Concomitant]
     Active Substance: AMOXICILLIN
     Dosage: 500 MILLIGRAM
     Route: 048
     Dates: start: 20190121, end: 20190123
  63. SALBUTAMOL [Concomitant]
     Active Substance: ALBUTEROL
     Indication: ASTHMA
     Dosage: AEROSOL IH (INHALED)
     Route: 048
     Dates: start: 201901
  64. BECLOMETASONE [Concomitant]
     Active Substance: BECLOMETHASONE DIPROPIONATE
     Indication: ASTHMA
     Dosage: 1 UNK, PRN (AEROSOL IH (INHALED) )
     Route: 065
     Dates: start: 201901
  65. TRAMADOL. [Concomitant]
     Active Substance: TRAMADOL
     Indication: PAIN
     Dosage: 50 MILLIGRAM, PRN
     Route: 048
     Dates: start: 20181220, end: 20181221
  66. TRASTUZUMAB. [Suspect]
     Active Substance: TRASTUZUMAB
     Dosage: 350 MILLIGRAM, Q3W
     Route: 042
     Dates: start: 20160303, end: 20160421
  67. TRASTUZUMAB. [Suspect]
     Active Substance: TRASTUZUMAB
     Dosage: 280 MILLIGRAM, Q3W
     Route: 042
     Dates: start: 20160421, end: 20161124
  68. CASSIA ACUTIFOLIA [Concomitant]
     Dosage: 7.5 MILLIGRAM, QD
     Route: 048
     Dates: start: 201505, end: 201505
  69. CASSIA ACUTIFOLIA [Concomitant]
     Dosage: UNK, MONTHLY
     Route: 048
     Dates: start: 201603
  70. DOCUSATE SODIUM. [Concomitant]
     Active Substance: DOCUSATE SODIUM
     Dosage: 400 MILLIGRAM, QD
     Route: 048
     Dates: start: 201603, end: 20160405
  71. DALTEPARIN [Concomitant]
     Active Substance: DALTEPARIN
     Indication: PERIPHERAL SWELLING
     Dosage: 18000 UNITS
     Route: 058
     Dates: start: 20150504, end: 20151027
  72. DOXYCYCLINE. [Concomitant]
     Active Substance: DOXYCYCLINE
     Dosage: 200 MILLIGRAM
     Route: 048
     Dates: start: 20150721, end: 20150721
  73. AMITRIPTYLINE [Concomitant]
     Active Substance: AMITRIPTYLINE
     Dosage: 150 MILLIGRAM, PRN
     Route: 048
     Dates: start: 201809
  74. DOCUSATE [Concomitant]
     Active Substance: DOCUSATE
     Indication: CONSTIPATION
     Dosage: 400 MILLIGRAM, QD
     Route: 048
     Dates: start: 201603
  75. DOCUSATE [Concomitant]
     Active Substance: DOCUSATE
     Dosage: 300 UNK, QD
     Route: 048
     Dates: start: 20160516
  76. DOCUSATE [Concomitant]
     Active Substance: DOCUSATE
     Dosage: UNK
     Route: 048
     Dates: start: 201603, end: 20160405
  77. CYCLIZINE [Concomitant]
     Active Substance: CYCLIZINE
     Dosage: 1 UNK, PRN
     Route: 042
     Dates: start: 20190119, end: 20190122
  78. PARACETAMOL [Concomitant]
     Active Substance: ACETAMINOPHEN
     Dosage: 1 GRAM
     Route: 042
     Dates: start: 20160508, end: 20160508
  79. SENNA                              /00142201/ [Concomitant]
     Active Substance: SENNA LEAF
     Indication: CONSTIPATION
     Dosage: 7.5 MILLIGRAM, QD
     Route: 048
     Dates: start: 20160512
  80. SENNA                              /00142201/ [Concomitant]
     Active Substance: SENNA LEAF
     Dosage: UNK
     Route: 048
     Dates: start: 201505, end: 201505
  81. LORAZEPAM. [Concomitant]
     Active Substance: LORAZEPAM
     Dosage: 1 MILLIGRAM, QD
     Route: 048
     Dates: start: 20160512
  82. DALTEPARIN [Concomitant]
     Active Substance: DALTEPARIN
     Dosage: 1 UNK, QD
     Route: 058
     Dates: start: 20160717, end: 20160722
  83. COCODAMOL [Concomitant]
     Active Substance: ACETAMINOPHEN\CODEINE PHOSPHATE
     Indication: CHOLECYSTITIS
     Dosage: 500 MILLIGRAM
     Route: 048
     Dates: start: 20151109, end: 201601
  84. AMOXICILLIN. [Concomitant]
     Active Substance: AMOXICILLIN
     Indication: NASOPHARYNGITIS
     Dosage: 1500 MILLIGRAM, QD
     Route: 048
     Dates: start: 20151007, end: 20151013
  85. OMEPRAZOLE. [Concomitant]
     Active Substance: OMEPRAZOLE
     Indication: GASTROOESOPHAGEAL REFLUX DISEASE
     Dosage: 20 MILLIGRAM
     Route: 048
     Dates: start: 201505
  86. BRUFEN                             /00109201/ [Concomitant]
     Active Substance: IBUPROFEN
     Indication: BACK PAIN
     Dosage: 1200 MILLIGRAM, QD
     Route: 048
     Dates: start: 20150509
  87. CHLORHEXIDINE [Concomitant]
     Active Substance: CHLORHEXIDINE
     Indication: MUCOSAL INFLAMMATION
     Dosage: 20 MILLIGRAM
     Route: 048
     Dates: start: 201603
  88. PARACETAMOL [Concomitant]
     Active Substance: ACETAMINOPHEN
     Dosage: 4000 MILLIGRAM, QD
     Route: 042
     Dates: start: 20181220, end: 20181220

REACTIONS (29)
  - Gingival bleeding [Recovered/Resolved]
  - Condition aggravated [Recovered/Resolved]
  - Urinary tract infection [Recovered/Resolved]
  - Headache [Not Recovered/Not Resolved]
  - Condition aggravated [Unknown]
  - Depressed mood [Not Recovered/Not Resolved]
  - Abdominal pain upper [Recovered/Resolved with Sequelae]
  - Pain [Not Recovered/Not Resolved]
  - Insomnia [Not Recovered/Not Resolved]
  - Alanine aminotransferase increased [Recovered/Resolved]
  - Nasopharyngitis [Unknown]
  - Hypoaesthesia [Not Recovered/Not Resolved]
  - Abdominal pain [Recovered/Resolved]
  - Nausea [Not Recovered/Not Resolved]
  - Gastroenteritis viral [Recovered/Resolved]
  - Vomiting [Recovered/Resolved]
  - Fatigue [Not Recovered/Not Resolved]
  - Anxiety [Not Recovered/Not Resolved]
  - Dizziness [Not Recovered/Not Resolved]
  - Constipation [Unknown]
  - Gastrointestinal disorder [Not Recovered/Not Resolved]
  - Lower respiratory tract infection [Recovered/Resolved]
  - Anaemia [Recovered/Resolved]
  - Rhinorrhoea [Recovered/Resolved]
  - Viral infection [Recovered/Resolved]
  - Peripheral swelling [Recovered/Resolved]
  - Back pain [Recovered/Resolved with Sequelae]
  - Mucosal inflammation [Recovered/Resolved]
  - Diarrhoea [Recovered/Resolved]

NARRATIVE: CASE EVENT DATE: 201505
